FAERS Safety Report 4989997-9 (Version None)
Quarter: 2006Q2

REPORT INFORMATION
  Report Type: 
  Country: None (occurrence: None)
  Receive Date: 20060503
  Receipt Date: 20060418
  Transmission Date: 20061013
  Serious: Yes (Other)
  Sender: FDA-Public Use
  Company Number: IE-JNJFOC-20060500267

PATIENT
  Sex: Female

DRUGS (8)
  1. ZYDOL [Suspect]
     Indication: ANALGESIC EFFECT
     Route: 048
  2. ASPIRIN [Concomitant]
     Route: 048
  3. PRAVASTATIN [Concomitant]
     Route: 048
  4. ELTROXIN [Concomitant]
     Route: 048
  5. LANSOPRAZOLE [Concomitant]
     Route: 048
  6. FRUSEMIDE [Concomitant]
     Route: 048
  7. LANOXIN [Concomitant]
     Route: 048
  8. ACETAMINOPHEN [Concomitant]
     Route: 065

REACTIONS (2)
  - DRY MOUTH [None]
  - SWOLLEN TONGUE [None]
